FAERS Safety Report 9197946 (Version 1)
Quarter: 2013Q1

REPORT INFORMATION
  Report Type: Spontaneous
  Country: US (occurrence: US)
  Receive Date: 20130328
  Receipt Date: 20130328
  Transmission Date: 20140127
  Serious: Yes (Death, Hospitalization, Other)
  Sender: FDA-Public Use
  Company Number: US-B.I. PHARMACEUTICALS,INC./RIDGEFIELD-2013-BI-08516GD

PATIENT
  Age: 76 Year
  Sex: Male

DRUGS (2)
  1. PRADAXA [Suspect]
     Indication: ATRIAL FIBRILLATION
     Dosage: 300 MG
  2. ASPIRIN [Suspect]
     Indication: CORONARY ARTERY DISEASE
     Dosage: 81 MG

REACTIONS (7)
  - Haemorrhage intracranial [Fatal]
  - Brain midline shift [Unknown]
  - Confusional state [Unknown]
  - Headache [Unknown]
  - Tinnitus [Unknown]
  - Aphasia [Unknown]
  - Cognitive disorder [Unknown]
